FAERS Safety Report 15365801 (Version 3)
Quarter: 2018Q3

REPORT INFORMATION
  Report Type: Spontaneous
  Country: IT (occurrence: IT)
  Receive Date: 20180910
  Receipt Date: 20180910
  Transmission Date: 20181010
  Serious: Yes (Hospitalization)
  Sender: FDA-Public Use
  Company Number: PHHY2018IT089150

PATIENT
  Age: 36 Year
  Sex: Male

DRUGS (6)
  1. KETODOL [Suspect]
     Active Substance: KETOROLAC TROMETHAMINE
     Indication: PRODUCT USED FOR UNKNOWN INDICATION
     Route: 065
  2. DICLOFENAC [Suspect]
     Active Substance: DICLOFENAC
     Indication: PRODUCT USED FOR UNKNOWN INDICATION
     Route: 065
  3. HALOPERIDOL. [Suspect]
     Active Substance: HALOPERIDOL
     Indication: PRODUCT USED FOR UNKNOWN INDICATION
     Dosage: 30 MG, UNK (TOTAL)
     Route: 048
     Dates: start: 20180818, end: 20180818
  4. PARACETAMOL [Suspect]
     Active Substance: ACETAMINOPHEN
     Indication: PRODUCT USED FOR UNKNOWN INDICATION
     Dosage: 7000 MG, UNK (TOTAL)
     Route: 048
     Dates: start: 20180818, end: 20180818
  5. ARIPIPRAZOLE. [Suspect]
     Active Substance: ARIPIPRAZOLE
     Indication: PRODUCT USED FOR UNKNOWN INDICATION
     Dosage: 3000 MG, UNK (TOTAL)
     Route: 048
     Dates: start: 20180818, end: 20180818
  6. PREDNISONE. [Suspect]
     Active Substance: PREDNISONE
     Indication: PRODUCT USED FOR UNKNOWN INDICATION
     Dosage: 250 MG, UNK (TOTAL)
     Route: 048
     Dates: start: 20180818, end: 20180818

REACTIONS (4)
  - Bradykinesia [Unknown]
  - Sopor [Unknown]
  - Suicide attempt [Unknown]
  - Drug abuse [Unknown]

NARRATIVE: CASE EVENT DATE: 20180818
